FAERS Safety Report 8619141-8 (Version None)
Quarter: 2012Q3

REPORT INFORMATION
  Report Type: 
  Country: None (occurrence: None)
  Receive Date: 20120824
  Receipt Date: 20120820
  Transmission Date: 20120928
  Serious: Yes (Other)
  Sender: FDA-Public Use
  Company Number: BR-ABBOTT-12P-020-0968352-00

PATIENT
  Sex: Female
  Weight: 50 kg

DRUGS (10)
  1. CALCIUM [Concomitant]
     Indication: OSTEOPOROSIS
     Route: 048
  2. RALOXIFENE HCL [Concomitant]
     Indication: OSTEOPOROSIS
  3. DOMPERIDONE [Concomitant]
     Indication: GASTROOESOPHAGEAL REFLUX PROPHYLAXIS
     Route: 047
  4. HUMIRA [Suspect]
     Indication: RHEUMATOID ARTHRITIS
  5. IMIPRAMINE HCL [Concomitant]
     Indication: DEPRESSION
     Route: 048
  6. KETOROLAC TROMETHAMINE [Concomitant]
     Indication: PAIN
     Route: 048
  7. BROMAZEPAM [Concomitant]
     Indication: ANXIOLYTIC THERAPY
  8. OMEPRAZOLE [Concomitant]
     Indication: GASTRIC DISORDER
     Route: 048
  9. PREDNISONE TAB [Concomitant]
     Indication: ARTHRITIS
     Route: 048
  10. UNSPECIFIED DRUG [Concomitant]
     Indication: DEPRESSION

REACTIONS (4)
  - DIABETES MELLITUS INADEQUATE CONTROL [None]
  - OSTEOPOROSIS [None]
  - OPEN FRACTURE [None]
  - FALL [None]
